FAERS Safety Report 14014993 (Version 2)
Quarter: 2017Q3

REPORT INFORMATION
  Report Type: Spontaneous
  Country: US (occurrence: US)
  Receive Date: 20170927
  Receipt Date: 20170928
  Transmission Date: 20171128
  Serious: No
  Sender: FDA-Public Use
  Company Number: US-CIPLA LTD.-2017US10914

PATIENT

DRUGS (4)
  1. DARIFENACIN. [Suspect]
     Active Substance: DARIFENACIN
     Indication: BLADDER DISORDER
     Dosage: UNK
     Route: 065
  2. CYMBALTA [Concomitant]
     Active Substance: DULOXETINE HYDROCHLORIDE
     Indication: DEPRESSION
  3. CYMBALTA [Concomitant]
     Active Substance: DULOXETINE HYDROCHLORIDE
     Indication: FIBROMYALGIA
     Dosage: 60 MG, UNK
     Route: 065
  4. DARIFENACIN. [Suspect]
     Active Substance: DARIFENACIN
     Dosage: 15 MG, QD, THREE DOSES
     Route: 048
     Dates: start: 20170608

REACTIONS (8)
  - Product substitution issue [Unknown]
  - Drug dose omission [Unknown]
  - Decreased appetite [Recovered/Resolved]
  - Abdominal discomfort [Recovered/Resolved]
  - Nausea [Recovered/Resolved]
  - Headache [Recovered/Resolved]
  - Malaise [Recovered/Resolved]
  - Eructation [Recovered/Resolved]

NARRATIVE: CASE EVENT DATE: 20170608
